FAERS Safety Report 16361712 (Version 1)
Quarter: 2019Q3

REPORT INFORMATION
  Report Type: Spontaneous
  Country: US (occurrence: US)
  Receive Date: 20190524
  Receipt Date: 20190524
  Transmission Date: 20191004
  Serious: Yes (Other)
  Sender: FDA-Public Use
  Company Number: None

PATIENT
  Age: 7 Year
  Sex: Male
  Weight: 26.7 kg

DRUGS (2)
  1. GENOTROPIN [Suspect]
     Active Substance: SOMATROPIN
     Dates: start: 20190101, end: 20190228
  2. GENOTROPIN [Suspect]
     Active Substance: SOMATROPIN
     Dates: start: 20190228

REACTIONS (4)
  - Product complaint [None]
  - Accidental overdose [None]
  - Device use error [None]
  - Device issue [None]

NARRATIVE: CASE EVENT DATE: 20190517
